FAERS Safety Report 12956542 (Version 1)
Quarter: 2016Q4

REPORT INFORMATION
  Report Type: Spontaneous
  Country: CA (occurrence: CA)
  Receive Date: 20161118
  Receipt Date: 20161118
  Transmission Date: 20170207
  Serious: Yes (Other)
  Sender: FDA-Public Use
  Company Number: CA-NOVOPROD-518934

PATIENT
  Age: 72 Year
  Sex: Female

DRUGS (12)
  1. VENLAFAXINE XR [Concomitant]
     Active Substance: VENLAFAXINE HYDROCHLORIDE
     Dosage: UNK
     Route: 048
  2. JANUVIA [Concomitant]
     Active Substance: SITAGLIPTIN PHOSPHATE
     Dosage: UNK
     Route: 065
  3. VITAMIN B12 [Concomitant]
     Active Substance: CYANOCOBALAMIN
     Dosage: UNK
     Route: 065
  4. VICTOZA [Suspect]
     Active Substance: LIRAGLUTIDE
     Indication: DIABETES MELLITUS
     Dosage: 1.8 MG, QD (THERAPY DURATION 17 DAYS)
     Route: 065
  5. GLICLAZIDE [Concomitant]
     Active Substance: GLICLAZIDE
     Dosage: UNK
     Route: 048
  6. DIAZEPAM. [Concomitant]
     Active Substance: DIAZEPAM
     Dosage: UNK
     Route: 065
  7. MELALEUCA ALTERNIFOLIA [Concomitant]
     Active Substance: TEA TREE OIL
     Dosage: UNK
     Route: 065
  8. ATIVAN [Concomitant]
     Active Substance: LORAZEPAM
     Dosage: UNK
     Route: 065
  9. CINNAMON                           /01647501/ [Concomitant]
     Active Substance: CINNAMON
     Dosage: UNK
     Route: 065
  10. RABEPRAZOLE [Concomitant]
     Active Substance: RABEPRAZOLE
     Dosage: UNK
     Route: 065
  11. PRIMIDONE. [Concomitant]
     Active Substance: PRIMIDONE
     Dosage: UNK
     Route: 048
  12. PSYLLIUM HUSK                      /00029102/ [Concomitant]
     Active Substance: PLANTAGO OVATA SEED COAT
     Dosage: UNK
     Route: 065

REACTIONS (3)
  - Depressive symptom [Recovered/Resolved]
  - Anxiety [Recovered/Resolved]
  - Condition aggravated [Recovered/Resolved]
